FAERS Safety Report 17921821 (Version 1)
Quarter: 2020Q2

REPORT INFORMATION
  Report Type: Report from Study
  Country: NL (occurrence: NL)
  Receive Date: 20200622
  Receipt Date: 20200622
  Transmission Date: 20200714
  Serious: Yes (Hospitalization, Other)
  Sender: FDA-Public Use
  Company Number: NL-TEVA-2020-NL-1789619

PATIENT
  Age: 68 Year
  Sex: Female

DRUGS (2)
  1. THIOSIX TABLETS [Suspect]
     Active Substance: THIOGUANINE ANHYDROUS
     Indication: INFLAMMATORY BOWEL DISEASE
     Dosage: 10 MILLIGRAM DAILY;
     Route: 065
     Dates: start: 20170124
  2. CLOPIDOGREL [Suspect]
     Active Substance: CLOPIDOGREL BISULFATE
     Route: 065

REACTIONS (1)
  - Rectal haemorrhage [Recovered/Resolved]

NARRATIVE: CASE EVENT DATE: 20181202
